FAERS Safety Report 17933469 (Version 1)
Quarter: 2020Q2

REPORT INFORMATION
  Report Type: Spontaneous
  Country: US (occurrence: US)
  Receive Date: 20200623
  Receipt Date: 20200623
  Transmission Date: 20200714
  Serious: No
  Sender: FDA-Public Use
  Company Number: None

PATIENT
  Age: 60 Year
  Sex: Male
  Weight: 85 kg

DRUGS (1)
  1. HYDROCHLOROTHIAZIDE/LISINOPRIL (HYDROCHLOROTHIAZIDE 25MG /LISINOPRIL [Suspect]
     Active Substance: HYDROCHLOROTHIAZIDE\LISINOPRIL
     Indication: HYPERTENSION
     Route: 048
     Dates: start: 20160614, end: 20170925

REACTIONS (1)
  - Angioedema [None]

NARRATIVE: CASE EVENT DATE: 20170923
